FAERS Safety Report 4492491-5 (Version None)
Quarter: 2004Q4

REPORT INFORMATION
  Report Type: 
  Country: None (occurrence: None)
  Receive Date: 20041029
  Receipt Date: 20040812
  Transmission Date: 20050328
  Serious: Yes (Other)
  Sender: FDA-Public Use
  Company Number: 2004050691

PATIENT
  Sex: Male
  Weight: 87.0906 kg

DRUGS (1)
  1. LIPITOR [Suspect]
     Indication: ILL-DEFINED DISORDER
     Dosage: 5 MG (5 MG, DAILY)
     Dates: start: 20031001, end: 20040702

REACTIONS (12)
  - BLOOD ALBUMIN ABNORMAL [None]
  - BLOOD UREA ABNORMAL [None]
  - COELIAC DISEASE [None]
  - CONDITION AGGRAVATED [None]
  - MALAISE [None]
  - MOVEMENT DISORDER [None]
  - MUSCLE ATROPHY [None]
  - MUSCULAR WEAKNESS [None]
  - MYALGIA [None]
  - PAIN IN EXTREMITY [None]
  - PYREXIA [None]
  - WEIGHT DECREASED [None]
